FAERS Safety Report 22011097 (Version 1)
Quarter: 2023Q1

REPORT INFORMATION
  Report Type: Spontaneous
  Country: US (occurrence: US)
  Receive Date: 20230220
  Receipt Date: 20230220
  Transmission Date: 20230417
  Serious: No
  Sender: FDA-Public Use
  Company Number: US-AMGEN-USASP2023027462

PATIENT
  Age: 4 Year
  Sex: Female

DRUGS (2)
  1. RITUXIMAB [Suspect]
     Active Substance: RITUXIMAB
     Indication: Ganglioneuroblastoma
     Dosage: UNK
     Route: 065
  2. PRIVIGEN [Concomitant]
     Active Substance: HUMAN IMMUNOGLOBULIN G
     Indication: Ganglioneuroblastoma
     Dosage: UNK
     Route: 040

REACTIONS (1)
  - Off label use [Unknown]
